FAERS Safety Report 4659655-9 (Version None)
Quarter: 2005Q2

REPORT INFORMATION
  Report Type: 
  Country: None (occurrence: None)
  Receive Date: 20050411
  Receipt Date: 20041217
  Transmission Date: 20051028
  Serious: No
  Sender: FDA-Public Use
  Company Number: A03200404297

PATIENT
  Age: 59 Year
  Sex: Male

DRUGS (2)
  1. UROXATRAL [Suspect]
     Indication: BENIGN PROSTATIC HYPERPLASIA
     Dosage: 10 MG OD - ORAL
     Route: 048
     Dates: start: 20050131, end: 20050206
  2. UROXATRAL [Suspect]
     Indication: BENIGN PROSTATIC HYPERPLASIA
     Dosage: 10 MG OD - ORAL
     Route: 048
     Dates: start: 20041101

REACTIONS (3)
  - PRURITUS [None]
  - RASH PAPULAR [None]
  - SKIN REACTION [None]
